FAERS Safety Report 18034180 (Version 2)
Quarter: 2020Q3

REPORT INFORMATION
  Report Type: Report from Study
  Country: US (occurrence: US)
  Receive Date: 20200716
  Receipt Date: 20200805
  Transmission Date: 20201103
  Serious: Yes (Other)
  Sender: FDA-Public Use
  Company Number: US-TAKEDA-2020TUS030416

PATIENT
  Age: 67 Year
  Sex: Female
  Weight: 61.68 kg

DRUGS (3)
  1. VEDOLIZUMAB [Suspect]
     Active Substance: VEDOLIZUMAB
     Indication: CROHN^S DISEASE
     Dosage: UNK
     Route: 065
  2. HUMIRA [Suspect]
     Active Substance: ADALIMUMAB
     Dosage: UNK
     Route: 058
  3. HUMIRA [Suspect]
     Active Substance: ADALIMUMAB
     Indication: CROHN^S DISEASE
     Dosage: 40 MILLIGRAM, Q2WEEKS
     Route: 058
     Dates: end: 2017

REACTIONS (20)
  - Blood iron decreased [Not Recovered/Not Resolved]
  - Rotator cuff syndrome [Recovered/Resolved]
  - Ulna fracture [Recovering/Resolving]
  - Anaemia [Recovering/Resolving]
  - White blood cell count decreased [Not Recovered/Not Resolved]
  - Wrist fracture [Recovering/Resolving]
  - Full blood count abnormal [Not Recovered/Not Resolved]
  - Fall [Unknown]
  - Platelet count decreased [Not Recovered/Not Resolved]
  - Cholecystectomy [Unknown]
  - Faeces discoloured [Unknown]
  - Radius fracture [Recovering/Resolving]
  - Food craving [Recovering/Resolving]
  - Immunosuppression [Not Recovered/Not Resolved]
  - Injection site pain [Recovered/Resolved]
  - Serum ferritin decreased [Not Recovered/Not Resolved]
  - Immunodeficiency [Not Recovered/Not Resolved]
  - Haemoglobin decreased [Not Recovered/Not Resolved]
  - Diarrhoea [Recovering/Resolving]
  - Faeces soft [Not Recovered/Not Resolved]

NARRATIVE: CASE EVENT DATE: 2018
